FAERS Safety Report 9383998 (Version 3)
Quarter: 2014Q2

REPORT INFORMATION
  Report Type: Report from Study
  Country: JP (occurrence: JP)
  Receive Date: 20130705
  Receipt Date: 20140620
  Transmission Date: 20141212
  Serious: Yes (Life-Threatening, Other)
  Sender: FDA-Public Use
  Company Number: JP-JNJFOC-20130700998

PATIENT
  Age: 74 Year
  Sex: Female
  Weight: 50 kg

DRUGS (15)
  1. RIVAROXABAN [Suspect]
     Indication: THROMBOSIS PROPHYLAXIS
     Route: 048
     Dates: start: 20130408, end: 20130419
  2. RIVAROXABAN [Suspect]
     Indication: CEREBROVASCULAR ACCIDENT PROPHYLAXIS
     Route: 048
     Dates: start: 20130408, end: 20130419
  3. LASIX [Suspect]
     Indication: CARDIAC FAILURE CHRONIC
     Route: 065
  4. LASIX [Suspect]
     Indication: CARDIAC FAILURE CHRONIC
     Route: 065
  5. LASIX [Suspect]
     Indication: CARDIAC FAILURE CHRONIC
     Route: 065
  6. LASIX [Suspect]
     Indication: CARDIAC FAILURE CHRONIC
     Route: 065
  7. WARFARIN [Suspect]
     Indication: PRODUCT USED FOR UNKNOWN INDICATION
     Route: 048
     Dates: start: 20130509
  8. ALDACTONE A [Suspect]
     Indication: PRODUCT USED FOR UNKNOWN INDICATION
     Route: 048
  9. GASTER [Concomitant]
     Indication: PROPHYLAXIS
     Route: 065
     Dates: start: 20130404, end: 20130417
  10. GLYCENON [Concomitant]
     Route: 065
     Dates: start: 20130404, end: 20130417
  11. RADICUT [Concomitant]
     Route: 065
     Dates: start: 20130404, end: 20130409
  12. ARTIST [Concomitant]
     Route: 048
  13. NICARDIPINE HYDROCHLORIDE [Concomitant]
     Route: 065
     Dates: start: 20130404, end: 20130426
  14. LANIRAPID [Concomitant]
     Indication: PROPHYLAXIS
     Route: 048
  15. MICARDIS [Concomitant]
     Indication: PROPHYLAXIS
     Route: 048

REACTIONS (6)
  - Haemorrhagic stroke [Recovering/Resolving]
  - Cardiac failure chronic [Recovered/Resolved]
  - Pneumonia aspiration [Recovered/Resolved]
  - Lower gastrointestinal haemorrhage [Recovered/Resolved]
  - Hypokalaemia [Recovered/Resolved]
  - Hepatic function abnormal [Recovering/Resolving]
